FAERS Safety Report 6420856-0 (Version None)
Quarter: 2009Q4

REPORT INFORMATION
  Report Type: 
  Country: None (occurrence: None)
  Receive Date: 20091030
  Receipt Date: 20091019
  Transmission Date: 20100525
  Serious: Yes (Hospitalization)
  Sender: FDA-Public Use
  Company Number: IL-RANBAXY-2009RR-28571

PATIENT
  Age: 42 Year
  Sex: Female

DRUGS (3)
  1. VENLAFAXINE [Suspect]
     Indication: ANXIETY
     Dosage: 75 MG, QD
  2. METOCLOPRAMIDE [Suspect]
     Indication: VOMITING
     Dosage: 10 MG, TID
     Route: 042
  3. TAMOXIFEN CITRATE [Concomitant]
     Indication: BREAST CANCER

REACTIONS (2)
  - DRUG INTERACTION [None]
  - SEROTONIN SYNDROME [None]
